FAERS Safety Report 5822960-4 (Version None)
Quarter: 2008Q3

REPORT INFORMATION
  Report Type: 
  Country: None (occurrence: None)
  Receive Date: 20080725
  Receipt Date: 20080717
  Transmission Date: 20090109
  Serious: Yes (Hospitalization)
  Sender: FDA-Public Use
  Company Number: A0736970A

PATIENT
  Age: 36 Year
  Sex: Female

DRUGS (4)
  1. IMITREX [Suspect]
     Indication: MIGRAINE
     Dosage: 6MG UNKNOWN
     Route: 058
     Dates: start: 19920101
  2. DEPAKOTE [Suspect]
     Indication: MIGRAINE PROPHYLAXIS
     Dosage: 3TAB PER DAY
     Route: 048
     Dates: start: 19940801, end: 19950101
  3. CALCIUM CHANNEL BLOCKER [Concomitant]
  4. INSULIN [Concomitant]

REACTIONS (11)
  - ABDOMINAL PAIN [None]
  - ABDOMINAL PAIN UPPER [None]
  - BLOOD PRESSURE INCREASED [None]
  - LYMPHADENOPATHY [None]
  - MIGRAINE [None]
  - MYELODYSPLASTIC SYNDROME [None]
  - PANCREATIC DUCT OBSTRUCTION [None]
  - PANCREATIC INJURY [None]
  - PANCREATITIS [None]
  - SCAR [None]
  - TYPE 1 DIABETES MELLITUS [None]
